FAERS Safety Report 4929248-4 (Version None)
Quarter: 2006Q1

REPORT INFORMATION
  Report Type: 
  Country: None (occurrence: None)
  Receive Date: 20060223
  Receipt Date: 20060214
  Transmission Date: 20060701
  Serious: Yes (Hospitalization)
  Sender: FDA-Public Use
  Company Number: 2006BI001029

PATIENT
  Age: 53 Year
  Sex: Female

DRUGS (5)
  1. AVONEX [Suspect]
     Indication: MULTIPLE SCLEROSIS
     Dosage: 30 UG;QW
     Dates: start: 20030731
  2. WELLBUTRIN [Concomitant]
  3. EVISTA [Concomitant]
  4. DETROL [Concomitant]
  5. FOSAMAX [Concomitant]

REACTIONS (1)
  - OSTEONECROSIS [None]
